FAERS Safety Report 9363717 (Version 1)
Quarter: 2013Q2

REPORT INFORMATION
  Report Type: Spontaneous
  Country: CO (occurrence: CO)
  Receive Date: 20130624
  Receipt Date: 20130624
  Transmission Date: 20140414
  Serious: Yes (Other)
  Sender: FDA-Public Use
  Company Number: CO-AMGEN-COLSP2013043862

PATIENT
  Age: 61 Year
  Sex: Female

DRUGS (1)
  1. ENBREL [Suspect]
     Indication: RHEUMATOID ARTHRITIS
     Dosage: 50 MG, WEEKLY
     Route: 058
     Dates: start: 20130214, end: 201305

REACTIONS (6)
  - Headache [Unknown]
  - Rash erythematous [Unknown]
  - Local swelling [Unknown]
  - Bone pain [Unknown]
  - Rash [Not Recovered/Not Resolved]
  - Tonsillitis fungal [Unknown]
